FAERS Safety Report 7689716-1 (Version None)
Quarter: 2011Q3

REPORT INFORMATION
  Report Type: 
  Country: None (occurrence: None)
  Receive Date: 20110817
  Receipt Date: 20110812
  Transmission Date: 20111222
  Serious: Yes (Hospitalization, Other)
  Sender: FDA-Public Use
  Company Number: US-ABBOTT-11P-163-0846336-00

PATIENT
  Age: 66 Year
  Sex: Female

DRUGS (13)
  1. HUMALOG [Concomitant]
     Indication: PRODUCT USED FOR UNKNOWN INDICATION
     Dosage: SLIDING SCALE AS NEEDED
  2. VITAMIN D [Concomitant]
     Indication: VITAMIN SUPPLEMENTATION
  3. ZANTAC [Concomitant]
     Indication: GASTROOESOPHAGEAL REFLUX DISEASE
     Dosage: AT BEDTIME
  4. PRILOSEC [Concomitant]
     Indication: GASTROOESOPHAGEAL REFLUX DISEASE
     Dosage: IN THE MORNING
  5. LUTEIN [Concomitant]
     Indication: MACULAR DEGENERATION
  6. LANTUS [Suspect]
     Indication: DIABETES MELLITUS
     Dosage: IN THE MORNING
  7. HUMIRA [Suspect]
     Indication: RHEUMATOID ARTHRITIS
  8. GABAPENTIN [Concomitant]
     Indication: NEUROPATHY PERIPHERAL
  9. EVOXAC [Concomitant]
     Indication: PRODUCT USED FOR UNKNOWN INDICATION
     Dosage: 3 TIMES DAILY
  10. BIOTIN [Concomitant]
     Indication: HAIR GROWTH ABNORMAL
  11. ACYCLOVIR [Concomitant]
     Indication: HERPES ZOSTER
  12. ACYCLOVIR [Concomitant]
     Indication: PROPHYLAXIS
     Dosage: TWICE DAILY
  13. ZINC [Concomitant]
     Indication: MACULAR DEGENERATION

REACTIONS (7)
  - BLOOD GLUCOSE DECREASED [None]
  - INCORRECT DOSE ADMINISTERED [None]
  - CARDIAC STRESS TEST ABNORMAL [None]
  - CHEST PAIN [None]
  - WRONG DRUG ADMINISTERED [None]
  - CYSTITIS [None]
  - PLEURITIC PAIN [None]
